FAERS Safety Report 4520223-0 (Version None)
Quarter: 2004Q4

REPORT INFORMATION
  Report Type: 
  Country: None (occurrence: None)
  Receive Date: 20041201
  Receipt Date: 20041201
  Transmission Date: 20050328
  Serious: Yes (Hospitalization)
  Sender: FDA-Public Use
  Company Number: None

PATIENT
  Sex: Male
  Weight: 81 kg

DRUGS (9)
  1. DARBEPOETIN ALFA [Suspect]
     Indication: ANAEMIA
     Dosage: 9MCG/KG (730 MCG SC Q WKLY)
     Route: 058
     Dates: start: 20040310
  2. DARBEPOETIN ALFA [Suspect]
     Indication: MYELODYSPLASTIC SYNDROME
     Dosage: 9MCG/KG (730 MCG SC Q WKLY)
     Route: 058
     Dates: start: 20040310
  3. GROWTH COLONY STIMULATING FACTOR (G-CSF) [Suspect]
     Indication: ANAEMIA
     Dosage: 2.5 MCG/KG (200 MCG SC 2X WKLY)
     Route: 058
     Dates: start: 20040310
  4. GROWTH COLONY STIMULATING FACTOR (G-CSF) [Suspect]
     Indication: MYELODYSPLASTIC SYNDROME
     Dosage: 2.5 MCG/KG (200 MCG SC 2X WKLY)
     Route: 058
     Dates: start: 20040310
  5. NEXIUM [Concomitant]
  6. GLYBURIDE [Concomitant]
  7. LISINOPRIL [Concomitant]
  8. GLUCOPHAGE [Concomitant]
  9. DESFERAL [Concomitant]

REACTIONS (4)
  - EAR INFECTION [None]
  - EXCESSIVE GRANULATION TISSUE [None]
  - OSTEOMYELITIS [None]
  - OTITIS EXTERNA [None]
